FAERS Safety Report 24881983 (Version 1)
Quarter: 2025Q1

REPORT INFORMATION
  Report Type: Spontaneous
  Country: US (occurrence: US)
  Receive Date: 20250124
  Receipt Date: 20250124
  Transmission Date: 20250408
  Serious: Yes (Other)
  Sender: AMGEN
  Company Number: US-AMGEN-USASP2025011188

PATIENT

DRUGS (2)
  1. BEVACIZUMAB [Suspect]
     Active Substance: BEVACIZUMAB
     Indication: Colorectal cancer metastatic
     Route: 065
  2. ME 344 [Concomitant]
     Route: 040

REACTIONS (17)
  - Leukocytosis [Unknown]
  - Blood bilirubin increased [Unknown]
  - Fatigue [Unknown]
  - Abdominal pain [Unknown]
  - Diarrhoea [Unknown]
  - Nausea [Unknown]
  - Decreased appetite [Unknown]
  - Dehydration [Unknown]
  - Hypertension [Unknown]
  - Blood alkaline phosphatase increased [Unknown]
  - Non-cardiac chest pain [Unknown]
  - Aspartate aminotransferase increased [Unknown]
  - Constipation [Unknown]
  - Vomiting [Unknown]
  - Hyponatraemia [Unknown]
  - Peripheral sensory neuropathy [Unknown]
  - Headache [Unknown]
